FAERS Safety Report 5937740-9 (Version None)
Quarter: 2008Q4

REPORT INFORMATION
  Report Type: 
  Country: None (occurrence: None)
  Receive Date: 20081031
  Receipt Date: 20080326
  Transmission Date: 20090506
  Serious: No
  Sender: FDA-Public Use
  Company Number: US-BAYER-200811332BCC

PATIENT
  Age: 78 Year
  Sex: Female
  Weight: 64 kg

DRUGS (11)
  1. ALEVE [Suspect]
     Indication: PAIN
     Dosage: TOTAL DAILY DOSE: 880 MG  UNIT DOSE: 220 MG
     Route: 048
     Dates: start: 20080322
  2. PRILOSEC [Concomitant]
  3. NASAL SPRAY [Concomitant]
  4. METFORMIN HCL [Concomitant]
  5. CYMBALTA [Concomitant]
  6. HYDROCHLOROTHIAZIDE [Concomitant]
  7. LEVOTHYROXINE SODIUM [Concomitant]
  8. GLIPIZIDE [Concomitant]
  9. CITRICAL [Concomitant]
  10. VYTORIN [Concomitant]
  11. MULTI-VITAMIN [Concomitant]

REACTIONS (1)
  - RASH [None]
